FAERS Safety Report 10170860 (Version 4)
Quarter: 2014Q3

REPORT INFORMATION
  Report Type: Spontaneous
  Country: AU (occurrence: AU)
  Receive Date: 20140514
  Receipt Date: 20140818
  Transmission Date: 20150326
  Serious: Yes (Hospitalization)
  Sender: FDA-Public Use
  Company Number: AU-009507513-1405AUS005313

PATIENT
  Sex: Male

DRUGS (6)
  1. LIDOCAINE. [Suspect]
     Active Substance: LIDOCAINE
     Dosage: UNK
     Route: 058
  2. ESMERON [Suspect]
     Active Substance: ROCURONIUM BROMIDE
     Dosage: AT INITIATION -BAG VALVE MASK
     Dates: start: 20140422
  3. PROPOFOL. [Suspect]
     Active Substance: PROPOFOL
     Dosage: UNK
  4. REMIFENTANIL HYDROCHLORIDE [Suspect]
     Active Substance: REMIFENTANIL HYDROCHLORIDE
     Dosage: UNK
  5. OXYGEN. [Suspect]
     Active Substance: OXYGEN
  6. CHLORINE [Suspect]
     Active Substance: CHLORINE
     Dosage: SKIN WIPE

REACTIONS (2)
  - Anaphylactic reaction [Unknown]
  - Troponin increased [Unknown]

NARRATIVE: CASE EVENT DATE: 201404
